FAERS Safety Report 7537391-9 (Version None)
Quarter: 2011Q2

REPORT INFORMATION
  Report Type: 
  Country: None (occurrence: None)
  Receive Date: 20110608
  Receipt Date: 20110608
  Transmission Date: 20111010
  Serious: Yes (Hospitalization)
  Sender: FDA-Public Use
  Company Number: None

PATIENT
  Sex: Male
  Weight: 73.4 kg

DRUGS (2)
  1. CISPLATIN [Suspect]
     Dosage: 147 MG
     Dates: end: 20110517
  2. GEMCITABINE HYDROCHLORIDE [Suspect]
     Dosage: 4704 MG
     Dates: end: 20110524

REACTIONS (6)
  - ASTHENIA [None]
  - VOMITING [None]
  - PYREXIA [None]
  - ELECTROLYTE SUBSTITUTION THERAPY [None]
  - NAUSEA [None]
  - DECREASED APPETITE [None]
